FAERS Safety Report 24755496 (Version 1)
Quarter: 2024Q4

REPORT INFORMATION
  Report Type: Spontaneous
  Country: CN (occurrence: CN)
  Receive Date: 20241219
  Receipt Date: 20241219
  Transmission Date: 20250114
  Serious: Yes (Hospitalization, Other)
  Sender: MYLAN
  Company Number: CN-MYLANLABS-2024M1113815

PATIENT
  Age: 79 Year
  Sex: Female
  Weight: 83 kg

DRUGS (2)
  1. LYRICA [Suspect]
     Active Substance: PREGABALIN
     Indication: End stage renal disease
     Dosage: 75 MILLIGRAM, BID
     Route: 048
     Dates: start: 20241127, end: 20241130
  2. LYRICA [Suspect]
     Active Substance: PREGABALIN
     Indication: Arthralgia

REACTIONS (2)
  - Affect lability [Recovering/Resolving]
  - Depressed level of consciousness [Recovering/Resolving]

NARRATIVE: CASE EVENT DATE: 20241130
